FAERS Safety Report 12979951 (Version 1)
Quarter: 2016Q4

REPORT INFORMATION
  Report Type: Spontaneous
  Country: US (occurrence: US)
  Receive Date: 20161128
  Receipt Date: 20161128
  Transmission Date: 20170207
  Serious: No
  Sender: FDA-Public Use
  Company Number: US-SUPERNUS PHARMACEUTICALS, INC.-2016SUP00142

PATIENT
  Age: 90 Year
  Sex: Male
  Weight: 70.75 kg

DRUGS (4)
  1. CALCIUM [Concomitant]
     Active Substance: CALCIUM
  2. VITAMIN B12 [Concomitant]
     Active Substance: CYANOCOBALAMIN
  3. EYE DROPS (UNSPECIFIED) [Concomitant]
  4. TROKENDI XR [Suspect]
     Active Substance: TOPIRAMATE
     Indication: TREMOR
     Dosage: 25 MG, 1X/DAY
     Route: 048
     Dates: start: 20160727

REACTIONS (2)
  - Somnolence [Not Recovered/Not Resolved]
  - Off label use [Not Recovered/Not Resolved]

NARRATIVE: CASE EVENT DATE: 20160727
